FAERS Safety Report 4612075-5 (Version None)
Quarter: 2005Q2

REPORT INFORMATION
  Report Type: 
  Country: None (occurrence: None)
  Receive Date: 20050308
  Receipt Date: 20050201
  Transmission Date: 20051028
  Serious: Yes (Other)
  Sender: FDA-Public Use
  Company Number: 2004UW26196

PATIENT
  Age: 82 Year
  Sex: Male

DRUGS (1)
  1. CRESTOR [Suspect]

REACTIONS (5)
  - ARTHRALGIA [None]
  - FEELING ABNORMAL [None]
  - MUSCULOSKELETAL DISCOMFORT [None]
  - MYALGIA [None]
  - STOMACH DISCOMFORT [None]
